FAERS Safety Report 25619119 (Version 2)
Quarter: 2025Q3

REPORT INFORMATION
  Report Type: Spontaneous
  Country: JP (occurrence: JP)
  Receive Date: 20250729
  Receipt Date: 20250912
  Transmission Date: 20251020
  Serious: Yes (Hospitalization, Other)
  Sender: MYLAN
  Company Number: JP-MYLANLABS-2025M1063274

PATIENT
  Age: 87 Year
  Sex: Male

DRUGS (16)
  1. VERAPAMIL [Suspect]
     Active Substance: VERAPAMIL HYDROCHLORIDE
     Indication: Atrial fibrillation
  2. VERAPAMIL [Suspect]
     Active Substance: VERAPAMIL HYDROCHLORIDE
  3. VERAPAMIL [Suspect]
     Active Substance: VERAPAMIL HYDROCHLORIDE
     Route: 048
  4. VERAPAMIL [Suspect]
     Active Substance: VERAPAMIL HYDROCHLORIDE
     Route: 048
  5. VERAPAMIL [Suspect]
     Active Substance: VERAPAMIL HYDROCHLORIDE
  6. VERAPAMIL [Suspect]
     Active Substance: VERAPAMIL HYDROCHLORIDE
  7. VERAPAMIL [Suspect]
     Active Substance: VERAPAMIL HYDROCHLORIDE
     Route: 065
  8. VERAPAMIL [Suspect]
     Active Substance: VERAPAMIL HYDROCHLORIDE
     Route: 065
  9. TAMBOCOR [Suspect]
     Active Substance: FLECAINIDE ACETATE
     Indication: Atrial fibrillation
  10. TAMBOCOR [Suspect]
     Active Substance: FLECAINIDE ACETATE
     Route: 048
  11. TAMBOCOR [Suspect]
     Active Substance: FLECAINIDE ACETATE
     Route: 048
  12. TAMBOCOR [Suspect]
     Active Substance: FLECAINIDE ACETATE
  13. BISOPROLOL [Suspect]
     Active Substance: BISOPROLOL
     Indication: Product used for unknown indication
  14. BISOPROLOL [Suspect]
     Active Substance: BISOPROLOL
     Route: 065
  15. BISOPROLOL [Suspect]
     Active Substance: BISOPROLOL
     Route: 065
  16. BISOPROLOL [Suspect]
     Active Substance: BISOPROLOL

REACTIONS (5)
  - Electrocardiogram QT prolonged [Recovering/Resolving]
  - Hypokalaemia [Recovering/Resolving]
  - Torsade de pointes [Recovering/Resolving]
  - Ventricular fibrillation [Recovered/Resolved]
  - Bradycardia [Recovering/Resolving]
